FAERS Safety Report 9946346 (Version 1)
Quarter: 2014Q1

REPORT INFORMATION
  Report Type: Spontaneous
  Country: US (occurrence: US)
  Receive Date: 20140303
  Receipt Date: 20140303
  Transmission Date: 20141002
  Serious: No
  Sender: FDA-Public Use
  Company Number: US-AMGEN-USASP2014002435

PATIENT
  Age: 58 Year
  Sex: Male

DRUGS (1)
  1. ENBREL [Suspect]
     Indication: RHEUMATOID ARTHRITIS
     Dosage: UNK
     Route: 065
     Dates: start: 201308

REACTIONS (9)
  - Haemoptysis [Unknown]
  - Productive cough [Unknown]
  - Respiratory tract congestion [Unknown]
  - Nasal congestion [Unknown]
  - Sputum discoloured [Unknown]
  - Pyrexia [Unknown]
  - Dyspnoea [Unknown]
  - Rheumatoid arthritis [Unknown]
  - Infection [Unknown]
